FAERS Safety Report 9633723 (Version 1)
Quarter: 2013Q4

REPORT INFORMATION
  Report Type: Spontaneous
  Country: US (occurrence: US)
  Receive Date: 20131021
  Receipt Date: 20131021
  Transmission Date: 20140711
  Serious: Yes (Other)
  Sender: FDA-Public Use
  Company Number: US-UCBSA-100664

PATIENT
  Age: 10 Year
  Sex: 0

DRUGS (1)
  1. VIMPAT [Suspect]
     Indication: CONVULSION
     Dosage: STRENGTH: 10 MG/ML

REACTIONS (2)
  - Pancreatitis chronic [Unknown]
  - Infection [Not Recovered/Not Resolved]
